FAERS Safety Report 11323560 (Version 2)
Quarter: 2015Q3

REPORT INFORMATION
  Report Type: Spontaneous
  Country: RU (occurrence: RU)
  Receive Date: 20150730
  Receipt Date: 20150817
  Transmission Date: 20151125
  Serious: Yes (Hospitalization)
  Sender: FDA-Public Use
  Company Number: RU-NOVOPROD-444225

PATIENT
  Age: 43 Year
  Sex: Male
  Weight: 60 kg

DRUGS (2)
  1. PRESTARIUM                         /00790701/ [Concomitant]
     Indication: HYPERTENSION
     Dosage: 5 MG, QD (1 TABLET PER DAY)
     Route: 048
  2. ACTRAPID [Suspect]
     Active Substance: INSULIN HUMAN
     Indication: TYPE 1 DIABETES MELLITUS
     Dosage: 40 U, QD (REGIMEN OF INSULIN THERAPY IS 5 INJECTIONS OF THE SUSPECTED PRODUCT PER DAY)
     Route: 058
     Dates: start: 2009, end: 201504

REACTIONS (3)
  - Hypoglycaemia [Unknown]
  - Drug ineffective [Unknown]
  - Diabetic metabolic decompensation [Not Recovered/Not Resolved]

NARRATIVE: CASE EVENT DATE: 2012
